FAERS Safety Report 7587228-7 (Version None)
Quarter: 2011Q3

REPORT INFORMATION
  Report Type: 
  Country: None (occurrence: None)
  Receive Date: 20110701
  Receipt Date: 20110628
  Transmission Date: 20111222
  Serious: Yes (Other)
  Sender: FDA-Public Use
  Company Number: US-AMGEN-QUU386693

PATIENT
  Age: 42 Year
  Sex: Male

DRUGS (3)
  1. METHOTREXATE [Concomitant]
     Dates: start: 19970101
  2. ENBREL [Suspect]
     Indication: PSORIATIC ARTHROPATHY
     Dosage: 50 MG, QWK
     Route: 058
     Dates: start: 20040101
  3. ENBREL [Suspect]
     Indication: PSORIASIS
     Dates: start: 19991012

REACTIONS (17)
  - ABDOMINAL DISTENSION [None]
  - HYPOAESTHESIA [None]
  - RASH MACULAR [None]
  - ABDOMINAL PAIN UPPER [None]
  - ERYTHEMA [None]
  - INJECTION SITE PAIN [None]
  - H1N1 INFLUENZA [None]
  - PSORIATIC ARTHROPATHY [None]
  - PHARYNGITIS STREPTOCOCCAL [None]
  - SKIN DISCOLOURATION [None]
  - THERAPEUTIC RESPONSE DECREASED [None]
  - VISUAL ACUITY REDUCED [None]
  - RECTAL HAEMORRHAGE [None]
  - PETECHIAE [None]
  - PAIN OF SKIN [None]
  - RASH [None]
  - SINUS CONGESTION [None]
